FAERS Safety Report 12813732 (Version 1)
Quarter: 2016Q4

REPORT INFORMATION
  Report Type: Spontaneous
  Country: US (occurrence: US)
  Receive Date: 20161005
  Receipt Date: 20161005
  Transmission Date: 20170207
  Serious: No
  Sender: FDA-Public Use
  Company Number: US-AMGEN-USASP2016029591

PATIENT
  Age: 53 Year
  Sex: Female

DRUGS (2)
  1. PROLIA [Suspect]
     Active Substance: DENOSUMAB
     Indication: OSTEOPOROSIS POSTMENOPAUSAL
     Dosage: UNK
     Route: 065
     Dates: start: 20160210
  2. CALCIUM [Concomitant]
     Active Substance: CALCIUM

REACTIONS (7)
  - Pain [Unknown]
  - Gastrointestinal wall thickening [Unknown]
  - Flatulence [Unknown]
  - Abdominal pain lower [Not Recovered/Not Resolved]
  - Faeces discoloured [Unknown]
  - Bowel movement irregularity [Unknown]
  - Back pain [Unknown]

NARRATIVE: CASE EVENT DATE: 201602
